FAERS Safety Report 21681513 (Version 2)
Quarter: 2023Q4

REPORT INFORMATION
  Report Type: Report from Study
  Country: US (occurrence: US)
  Receive Date: 20221205
  Receipt Date: 20231114
  Transmission Date: 20240110
  Serious: Yes (Hospitalization, Other)
  Sender: FDA-Public Use
  Company Number: US-ABBVIE-4223233

PATIENT
  Sex: Female

DRUGS (1)
  1. HUMIRA [Suspect]
     Active Substance: ADALIMUMAB
     Indication: Rheumatoid arthritis
     Dosage: FORM STRENGTH: 40 MILLIGRAM, CITRATE FREE
     Route: 058

REACTIONS (12)
  - Blood disorder [Recovered/Resolved]
  - Fall [Unknown]
  - Dizziness [Recovered/Resolved]
  - Cystitis [Recovered/Resolved]
  - Head injury [Recovering/Resolving]
  - Concussion [Unknown]
  - Loss of consciousness [Recovering/Resolving]
  - Urinary tract infection [Unknown]
  - Sepsis [Unknown]
  - Weight decreased [Unknown]
  - Pancreatic disorder [Unknown]
  - Internal haemorrhage [Unknown]

NARRATIVE: CASE EVENT DATE: 20220101
